FAERS Safety Report 21514758 (Version 1)
Quarter: 2022Q4

REPORT INFORMATION
  Report Type: Spontaneous
  Country: MY (occurrence: MY)
  Receive Date: 20221027
  Receipt Date: 20221027
  Transmission Date: 20230113
  Serious: Yes (Other)
  Sender: FDA-Public Use
  Company Number: MY-JNJFOC-20220934097

PATIENT
  Age: 61 Year
  Sex: Male

DRUGS (11)
  1. VINCRISTINE SULFATE [Suspect]
     Active Substance: VINCRISTINE SULFATE
     Indication: Leptomeningeal myelomatosis
     Dosage: 1.4 MG/M2 (MAX 2.8 MG) IVI IN 100 ML NS OVER 15 MIN, CYCLE 1-5,6,7, DAY 1
     Route: 042
     Dates: start: 2022
  2. DEXAMETHASONE [Suspect]
     Active Substance: DEXAMETHASONE
     Indication: Leptomeningeal myelomatosis
     Dosage: 20 MG, CYCLIC
     Route: 042
  3. DEXAMETHASONE [Suspect]
     Active Substance: DEXAMETHASONE
     Dosage: 20 MG, CYCLIC, D2
     Route: 048
  4. DEXAMETHASONE [Suspect]
     Active Substance: DEXAMETHASONE
     Dosage: 10 MG, CYCLIC, D3
     Route: 048
  5. DEXAMETHASONE [Suspect]
     Active Substance: DEXAMETHASONE
     Dosage: 4 MG, CYCLIC, D4
     Route: 048
  6. DEXAMETHASONE [Suspect]
     Active Substance: DEXAMETHASONE
     Dosage: 2 MG, CYCLIC, D5
     Route: 048
  7. DEXAMETHASONE [Suspect]
     Active Substance: DEXAMETHASONE
     Dosage: 4 MG, CYCLIC; DAY 8
     Route: 037
  8. POMALIDOMIDE [Suspect]
     Active Substance: POMALIDOMIDE
     Indication: Leptomeningeal myelomatosis
     Dosage: 4MG PO EVERY MONDAY, WEDNESDAY, FRIDAY, CYCLE- 1 - 5, 6, 7
     Route: 048
     Dates: start: 2022
  9. PROCARBAZINE [Suspect]
     Active Substance: PROCARBAZINE
     Indication: Leptomeningeal myelomatosis
     Dosage: 100 MG/M2 PO OD, CYCLE - 1, 3, 5, 7
     Route: 048
     Dates: start: 2022
  10. DARATUMUMAB [Suspect]
     Active Substance: DARATUMUMAB
     Indication: Leptomeningeal myelomatosis
     Dosage: 16 MG/KG IVI IN 1000 ML NS WITH INFUSION RATE AS PER RECOMMENDATION,CYCLE- 1- 5, 6, 7, DAY 1
     Route: 042
     Dates: start: 2022
  11. THIOTEPA [Suspect]
     Active Substance: THIOTEPA
     Indication: Leptomeningeal myelomatosis
     Dosage: 12 MG, CYCLIC, CYCLE 1-5, 6,7; DAY 8
     Route: 037

REACTIONS (3)
  - Peripheral sensory neuropathy [Unknown]
  - Condition aggravated [Unknown]
  - Abscess limb [Recovered/Resolved]

NARRATIVE: CASE EVENT DATE: 20220101
